FAERS Safety Report 9460072 (Version 1)
Quarter: 2013Q3

REPORT INFORMATION
  Report Type: Spontaneous
  Country: US (occurrence: US)
  Receive Date: 20130815
  Receipt Date: 20130815
  Transmission Date: 20140515
  Serious: Yes (Other)
  Sender: FDA-Public Use
  Company Number: US-ABBOTT-13P-163-1132073-00

PATIENT
  Age: 52 Year
  Sex: 0

DRUGS (2)
  1. VICOPROFEN [Suspect]
     Indication: PRODUCT USED FOR UNKNOWN INDICATION
     Dates: start: 201306
  2. OXYCONTIN [Concomitant]
     Indication: PRODUCT USED FOR UNKNOWN INDICATION
     Dates: start: 201306

REACTIONS (6)
  - Cerebrovascular accident [Unknown]
  - Headache [Unknown]
  - Malaise [Unknown]
  - Hyperhidrosis [Unknown]
  - Vision blurred [Unknown]
  - Drug withdrawal syndrome [Unknown]
